FAERS Safety Report 8966603 (Version 1)
Quarter: 2012Q4

REPORT INFORMATION
  Report Type: 
  Country: US (occurrence: US)
  Receive Date: 20121214
  Receipt Date: 20121214
  Transmission Date: 20130627
  Serious: No
  Sender: FDA-Public Use
  Company Number: US-ASTRAZENECA-2012SE91354

PATIENT
  Age: 62 Year
  Sex: Female
  Weight: 104.3 kg

DRUGS (6)
  1. LISINOPRIL [Suspect]
     Indication: THYROID DISORDER
     Route: 048
  2. SEROQUEL XR [Suspect]
     Indication: MAJOR DEPRESSION
     Route: 048
     Dates: start: 2009
  3. SEROQUEL XR [Suspect]
     Indication: INSOMNIA
     Route: 048
     Dates: start: 2009
  4. SEROQUEL XR [Suspect]
     Indication: DEPRESSION
     Route: 048
     Dates: start: 2009
  5. PRAVASTATIN [Suspect]
     Route: 048
  6. VENLAFAXINE [Concomitant]
     Indication: DEPRESSION

REACTIONS (3)
  - Blood cholesterol increased [Unknown]
  - Chromaturia [Unknown]
  - Memory impairment [Unknown]
